FAERS Safety Report 16748147 (Version 1)
Quarter: 2019Q3

REPORT INFORMATION
  Report Type: Spontaneous
  Country: GB (occurrence: GB)
  Receive Date: 20190827
  Receipt Date: 20190827
  Transmission Date: 20191005
  Serious: Yes (Disabling)
  Sender: FDA-Public Use
  Company Number: GB-GILEAD-2019-0425380

PATIENT
  Age: 17 Year
  Sex: Male
  Weight: 58 kg

DRUGS (17)
  1. COLOMYCIN [Concomitant]
  2. SODIUM CHLORIDE. [Concomitant]
     Active Substance: SODIUM CHLORIDE
  3. PREDNISOLONE. [Concomitant]
     Active Substance: PREDNISOLONE
  4. AMOXICILLIN. [Concomitant]
     Active Substance: AMOXICILLIN
  5. DORNASE ALFA. [Concomitant]
     Active Substance: DORNASE ALFA
  6. SERETIDE [Concomitant]
     Active Substance: FLUTICASONE PROPIONATE\SALMETEROL XINAFOATE
  7. COLECALCIFEROL [Concomitant]
     Active Substance: CHOLECALCIFEROL
  8. AZTREONAM LYSINE [Suspect]
     Active Substance: AZTREONAM LYSINE
     Indication: CYSTIC FIBROSIS
     Route: 042
     Dates: start: 20190620
  9. AZTREONAM LYSINE [Suspect]
     Active Substance: AZTREONAM LYSINE
     Indication: PSEUDOMONAS INFECTION
  10. NYSTATIN. [Concomitant]
     Active Substance: NYSTATIN
  11. TOBRAMYCIN. [Concomitant]
     Active Substance: TOBRAMYCIN
  12. MACROGOL [Concomitant]
     Active Substance: POLYETHYLENE GLYCOLS
  13. SALBUTAMOL [Concomitant]
     Active Substance: ALBUTEROL
  14. ONDANSETRON HYDROCHLORIDE. [Concomitant]
     Active Substance: ONDANSETRON HYDROCHLORIDE
  15. CEFRADINE [Concomitant]
     Active Substance: CEPHRADINE
  16. OMEPRAZOLE. [Concomitant]
     Active Substance: OMEPRAZOLE
  17. HEPSAL [Concomitant]
     Active Substance: HEPARIN SODIUM

REACTIONS (4)
  - Hyperhidrosis [Recovered/Resolved]
  - Abdominal pain [Recovered/Resolved]
  - Pallor [Recovered/Resolved]
  - Chest pain [Recovered/Resolved]

NARRATIVE: CASE EVENT DATE: 20190620
